FAERS Safety Report 9176508 (Version 1)
Quarter: 2013Q1

REPORT INFORMATION
  Report Type: Spontaneous
  Country: US (occurrence: None)
  Receive Date: 20130320
  Receipt Date: 20130320
  Transmission Date: 20140127
  Serious: Yes (Hospitalization)
  Sender: FDA-Public Use
  Company Number: None

PATIENT
  Age: 59 Year
  Sex: Male
  Weight: 83.4 kg

DRUGS (1)
  1. WARFARIN [Suspect]
     Indication: ATRIAL FIBRILLATION
     Dosage: 5 MG  OTHER  PO?02/19/2009  THRU  02/16/2010
     Route: 048
     Dates: start: 20090219, end: 20100216

REACTIONS (11)
  - Haemorrhage [None]
  - Faeces discoloured [None]
  - Faeces discoloured [None]
  - Asthenia [None]
  - Asthenia [None]
  - Fall [None]
  - Vomiting [None]
  - Dyspnoea [None]
  - Alcohol use [None]
  - Treatment noncompliance [None]
  - International normalised ratio increased [None]
